FAERS Safety Report 9513183 (Version 1)
Quarter: 2013Q1

REPORT INFORMATION
  Report Type: Spontaneous
  Country: US (occurrence: None)
  Receive Date: 20130305
  Receipt Date: 20130305
  Transmission Date: 20140127
  Serious: No
  Sender: FDA-Public Use
  Company Number: 163-21880-12101589

PATIENT
  Age: 82 Year
  Sex: Female
  Weight: 68.04 kg

DRUGS (1)
  1. REVLIMID (LENALIDOMIDE) (10 MILIGRAM, CAPSULES) [Suspect]
     Indication: 5Q MINUS SYNDROME
     Dosage: 10MG, 1 IN 1 D, PO
     Route: 048
     Dates: start: 20120913

REACTIONS (1)
  - Full blood count decreased [None]
